FAERS Safety Report 18626665 (Version 3)
Quarter: 2021Q1

REPORT INFORMATION
  Report Type: Spontaneous
  Country: US (occurrence: US)
  Receive Date: 20201217
  Receipt Date: 20210317
  Transmission Date: 20210419
  Serious: No
  Sender: FDA-Public Use
  Company Number: US-SA-2020SA359257

PATIENT
  Age: 31 Year
  Sex: Female

DRUGS (1)
  1. DUPIXENT [Suspect]
     Active Substance: DUPILUMAB
     Indication: NASAL POLYPS
     Dosage: 300 MG, QOW
     Route: 058
     Dates: start: 20200717

REACTIONS (5)
  - Weight increased [Unknown]
  - Dry eye [Unknown]
  - Periodic limb movement disorder [Unknown]
  - Headache [Unknown]
  - Injection site reaction [Unknown]

NARRATIVE: CASE EVENT DATE: 202012
